FAERS Safety Report 16783033 (Version 1)
Quarter: 2019Q3

REPORT INFORMATION
  Report Type: Spontaneous
  Country: FR (occurrence: FR)
  Receive Date: 20190906
  Receipt Date: 20190906
  Transmission Date: 20191005
  Serious: Yes (Hospitalization)
  Sender: FDA-Public Use
  Company Number: PHHY2019FR205250

PATIENT
  Age: 36 Year
  Sex: Male

DRUGS (2)
  1. PARACETAMOL [Suspect]
     Active Substance: ACETAMINOPHEN
     Indication: TOXICITY TO VARIOUS AGENTS
     Dosage: 8 G, UNK
     Route: 048
  2. METEOSPASMYL [ALVERINE CITRATE;DL-METHIONINE] [Suspect]
     Active Substance: ALVERINE CITRATE\RACEMETHIONINE
     Indication: TOXICITY TO VARIOUS AGENTS
     Dosage: 6 DF, UNK
     Route: 048

REACTIONS (3)
  - Nausea [Recovered/Resolved]
  - Abdominal pain [Recovered/Resolved]
  - Toxicity to various agents [Recovered/Resolved]

NARRATIVE: CASE EVENT DATE: 20181107
